FAERS Safety Report 18457813 (Version 2)
Quarter: 2020Q4

REPORT INFORMATION
  Report Type: Spontaneous
  Country: PT (occurrence: PT)
  Receive Date: 20201103
  Receipt Date: 20201215
  Transmission Date: 20210114
  Serious: Yes (Death, Other)
  Sender: FDA-Public Use
  Company Number: PT-MYLANLABS-2020M1091547

PATIENT
  Age: 34 Year
  Sex: Male

DRUGS (9)
  1. ETOPOSIDE. [Suspect]
     Active Substance: ETOPOSIDE
     Indication: EXTRAGONADAL PRIMARY GERM CELL TUMOUR
     Dosage: UNK
  2. ETOPOSIDE. [Suspect]
     Active Substance: ETOPOSIDE
     Indication: NEOPLASM PROGRESSION
  3. BLEOMYCIN [Suspect]
     Active Substance: BLEOMYCIN SULFATE
     Indication: CONDITION AGGRAVATED
  4. BLEOMYCIN [Suspect]
     Active Substance: BLEOMYCIN SULFATE
     Indication: NEOPLASM PROGRESSION
  5. CISPLATIN. [Suspect]
     Active Substance: CISPLATIN
     Indication: EXTRAGONADAL PRIMARY GERM CELL TUMOUR
     Dosage: UNK
  6. BLEOMYCIN [Suspect]
     Active Substance: BLEOMYCIN SULFATE
     Indication: EXTRAGONADAL PRIMARY GERM CELL TUMOUR
     Dosage: UNK
  7. CISPLATIN. [Suspect]
     Active Substance: CISPLATIN
     Indication: NEOPLASM PROGRESSION
  8. ETOPOSIDE. [Suspect]
     Active Substance: ETOPOSIDE
     Indication: CONDITION AGGRAVATED
  9. CISPLATIN. [Suspect]
     Active Substance: CISPLATIN
     Indication: CONDITION AGGRAVATED

REACTIONS (4)
  - Candida infection [Unknown]
  - Off label use [Unknown]
  - Neutropenia [Unknown]
  - Disease progression [Fatal]
